FAERS Safety Report 8071191-9 (Version None)
Quarter: 2012Q1

REPORT INFORMATION
  Report Type: 
  Country: None (occurrence: None)
  Receive Date: 20120125
  Receipt Date: 20120111
  Transmission Date: 20120608
  Serious: Yes (Hospitalization, Other)
  Sender: FDA-Public Use
  Company Number: PHBS2007JP20330

PATIENT
  Age: 17 Year
  Sex: Female

DRUGS (2)
  1. CYCLOSPORINE [Suspect]
     Indication: CHRONIC GRAFT VERSUS HOST DISEASE
     Dosage: UNK UKN, UNK
     Dates: start: 19970701, end: 19980201
  2. CYCLOSPORINE [Suspect]
     Dosage: UNK UKN, UNK
     Route: 048
     Dates: start: 20030401, end: 20030101

REACTIONS (19)
  - OBLITERATIVE BRONCHIOLITIS [None]
  - MOUTH ULCERATION [None]
  - RESPIRATORY FAILURE [None]
  - CHRONIC GRAFT VERSUS HOST DISEASE [None]
  - RASH [None]
  - BRONCHIECTASIS [None]
  - VITAL CAPACITY DECREASED [None]
  - SCLERODERMA [None]
  - ATELECTASIS [None]
  - ACUTE LYMPHOCYTIC LEUKAEMIA RECURRENT [None]
  - DRY EYE [None]
  - LACRIMAL DISORDER [None]
  - ANAEMIA [None]
  - COUGH [None]
  - DYSPNOEA [None]
  - FORCED EXPIRATORY VOLUME DECREASED [None]
  - DYSPNOEA EXERTIONAL [None]
  - HYPERCAPNIA [None]
  - LICHENIFICATION [None]
